FAERS Safety Report 8037030-7 (Version None)
Quarter: 2012Q1

REPORT INFORMATION
  Report Type: 
  Country: None (occurrence: None)
  Receive Date: 20120111
  Receipt Date: 20120105
  Transmission Date: 20120608
  Serious: Yes (Other)
  Sender: FDA-Public Use
  Company Number: US-BRISTOL-MYERS SQUIBB COMPANY-16333395

PATIENT

DRUGS (1)
  1. RECOTHROM [Suspect]
     Dosage: LAST DOSE:5JAN12
     Route: 058

REACTIONS (1)
  - DRUG ADMINISTRATION ERROR [None]
